FAERS Safety Report 12796555 (Version 1)
Quarter: 2016Q3

REPORT INFORMATION
  Report Type: Spontaneous
  Country: FR (occurrence: FR)
  Receive Date: 20160929
  Receipt Date: 20160929
  Transmission Date: 20161109
  Serious: Yes (Hospitalization, Other)
  Sender: FDA-Public Use
  Company Number: FR-PFIZER INC-2016448718

PATIENT
  Age: 51 Year
  Sex: Female

DRUGS (3)
  1. OMEPRAZOLE. [Concomitant]
     Active Substance: OMEPRAZOLE
  2. EPIRUBICIN HCL [Suspect]
     Active Substance: EPIRUBICIN HYDROCHLORIDE
     Dosage: 95 MG, CYCLIC (50 MG/M2 ACCORDING TO THE CYCLE (95 MG IN ALL))
     Dates: start: 20160506, end: 20160715
  3. DOCETAXEL. [Suspect]
     Active Substance: DOCETAXEL
     Dosage: 95 MG, ONE EVERY 2 WEEKS(50 MG/M2 CYCLIC EVERY 2 WEEKS)
     Route: 042
     Dates: start: 20160506, end: 20160715

REACTIONS (5)
  - Pyrexia [Unknown]
  - Malaise [Unknown]
  - Haemoglobin decreased [Unknown]
  - Diarrhoea [Unknown]
  - Agranulocytosis [Recovered/Resolved]

NARRATIVE: CASE EVENT DATE: 20160717
